FAERS Safety Report 9012960 (Version 2)
Quarter: 2013Q1

REPORT INFORMATION
  Report Type: Spontaneous
  Country: FR (occurrence: FR)
  Receive Date: 20130114
  Receipt Date: 20130129
  Transmission Date: 20140127
  Serious: Yes (Other)
  Sender: FDA-Public Use
  Company Number: FR-GLAXOSMITHKLINE-B0857769A

PATIENT
  Age: 17 None
  Sex: Female

DRUGS (2)
  1. LAMICTAL [Suspect]
     Indication: PARTIAL SEIZURES
     Dosage: 400MG PER DAY
     Route: 048
  2. STEDIRIL [Suspect]
     Indication: CONTRACEPTION
     Dosage: 1UNIT PER DAY
     Route: 048
     Dates: start: 20121127, end: 20121205

REACTIONS (4)
  - Epilepsy [Recovered/Resolved]
  - Drug ineffective [Recovered/Resolved]
  - Malaise [Recovered/Resolved]
  - Drug interaction [Unknown]
